FAERS Safety Report 5334026-0 (Version None)
Quarter: 2007Q2

REPORT INFORMATION
  Report Type: 
  Country: None (occurrence: None)
  Receive Date: 20070524
  Receipt Date: 20070522
  Transmission Date: 20071010
  Serious: Yes (Life-Threatening)
  Sender: FDA-Public Use
  Company Number: GB-ROXANE LABORATORIES, INC-2007-DE-03025GD

PATIENT
  Age: 38 Year
  Sex: Male
  Weight: 250 kg

DRUGS (5)
  1. MORPHINE SULFATE [Suspect]
  2. PARACETAMOL [Concomitant]
  3. DESFLURANE [Concomitant]
     Indication: MAINTENANCE OF ANAESTHESIA
  4. REMIFENTANIL [Concomitant]
     Indication: MAINTENANCE OF ANAESTHESIA
  5. ROCURONIUM BROMIDE [Concomitant]
     Indication: MAINTENANCE OF ANAESTHESIA

REACTIONS (3)
  - HYPERCAPNIA [None]
  - LOSS OF CONSCIOUSNESS [None]
  - OBSTRUCTIVE AIRWAYS DISORDER [None]
